FAERS Safety Report 6094001-8 (Version None)
Quarter: 2009Q1

REPORT INFORMATION
  Report Type: 
  Country: None (occurrence: None)
  Receive Date: 20090226
  Receipt Date: 20090220
  Transmission Date: 20090719
  Serious: Yes (Life-Threatening, Hospitalization)
  Sender: FDA-Public Use
  Company Number: B0560718A

PATIENT
  Age: 66 Year
  Sex: Male

DRUGS (12)
  1. AUGMENTIN '125' [Suspect]
     Indication: ANTIBIOTIC PROPHYLAXIS
     Route: 042
     Dates: start: 20081121
  2. ULTIVA [Concomitant]
     Route: 042
     Dates: start: 20081121
  3. RANIPLEX [Concomitant]
     Indication: PREMEDICATION
     Route: 065
  4. KETALAR [Concomitant]
     Route: 042
     Dates: start: 20081121
  5. DIPRIVAN [Concomitant]
     Route: 042
     Dates: start: 20081121
  6. DESFLURANE [Concomitant]
     Route: 055
     Dates: start: 20081121
  7. ATARAX [Concomitant]
     Indication: PREMEDICATION
     Route: 065
  8. TENORMIN [Concomitant]
     Indication: PREMEDICATION
     Dosage: 50MG PER DAY
     Route: 048
  9. PREVISCAN [Concomitant]
     Route: 065
  10. CORDARONE [Concomitant]
     Dosage: 400MG PER DAY
     Route: 048
  11. MOPRAL [Concomitant]
     Dosage: 20MG PER DAY
     Route: 065
  12. FLUDEX [Concomitant]
     Dosage: 1.5MG PER DAY
     Route: 065

REACTIONS (5)
  - ANAPHYLACTIC SHOCK [None]
  - BRADYCARDIA [None]
  - CIRCULATORY COLLAPSE [None]
  - EYELID OEDEMA [None]
  - GENERALISED ERYTHEMA [None]
